FAERS Safety Report 6388308-4 (Version None)
Quarter: 2009Q3

REPORT INFORMATION
  Report Type: 
  Country: None (occurrence: None)
  Receive Date: 20090930
  Receipt Date: 20090924
  Transmission Date: 20100115
  Serious: Yes (Hospitalization, Other)
  Sender: FDA-Public Use
  Company Number: 2009SP025790

PATIENT
  Age: 75 Year
  Sex: Female

DRUGS (9)
  1. BETAMETHASONE [Suspect]
     Indication: DRUG USE FOR UNKNOWN INDICATION
     Dosage: 4 MG; PO
     Route: 048
     Dates: start: 20080501, end: 20090101
  2. SOLUPRED (PREDNISOLONE SODIUM SULFOBENZOATE) [Suspect]
     Indication: DRUG USE FOR UNKNOWN INDICATION
     Dosage: 40 MG;QD
     Dates: start: 20090101, end: 20090601
  3. LEVOTHYROXINE SODIUM [Concomitant]
  4. AMLOR [Concomitant]
  5. TAHOR [Concomitant]
  6. ATARAX [Concomitant]
  7. CYSTINE B6 [Concomitant]
  8. PORPOFAN [Concomitant]
  9. FUCIDINE CAP [Concomitant]

REACTIONS (23)
  - AMYOTROPHY [None]
  - AUTONOMIC NERVOUS SYSTEM IMBALANCE [None]
  - BACTERIAL INFECTION [None]
  - BLOOD ALBUMIN DECREASED [None]
  - BLOOD THYROID STIMULATING HORMONE INCREASED [None]
  - CUSHING'S SYNDROME [None]
  - DRUG INEFFECTIVE [None]
  - ECCHYMOSIS [None]
  - FLUID RETENTION [None]
  - MALNUTRITION [None]
  - OEDEMA [None]
  - OEDEMA PERIPHERAL [None]
  - OSTEOMALACIA [None]
  - PAIN OF SKIN [None]
  - PHOTOSENSITIVITY REACTION [None]
  - SKIN FRAGILITY [None]
  - SKIN LESION [None]
  - SKIN ULCER [None]
  - SPINAL COMPRESSION FRACTURE [None]
  - THYROXINE INCREASED [None]
  - TREMOR [None]
  - VITAMIN D DEFICIENCY [None]
  - WEIGHT INCREASED [None]
